FAERS Safety Report 4321207-8 (Version None)
Quarter: 2004Q1

REPORT INFORMATION
  Report Type: 
  Country: None (occurrence: None)
  Receive Date: 20040323
  Receipt Date: 20040207
  Transmission Date: 20041129
  Serious: Yes (Other)
  Sender: FDA-Public Use
  Company Number: PHEH2004US01764

PATIENT
  Sex: Female

DRUGS (3)
  1. TEGRETOL [Suspect]
     Indication: CONVULSION
     Dosage: 1000 MG/DAY
     Route: 048
     Dates: start: 19900101
  2. DILANTIN [Concomitant]
     Indication: CONVULSION
     Dosage: 300 MG, QHS
     Route: 048
  3. PERIACTIN [Concomitant]
     Route: 048

REACTIONS (1)
  - WEIGHT INCREASED [None]
